FAERS Safety Report 4732820-8 (Version None)
Quarter: 2005Q3

REPORT INFORMATION
  Report Type: 
  Country: None (occurrence: None)
  Receive Date: 20050801
  Receipt Date: 20050801
  Transmission Date: 20060218
  Serious: Yes (Life-Threatening, Hospitalization, Disabling)
  Sender: FDA-Public Use
  Company Number: None

PATIENT
  Sex: Female
  Weight: 68.0396 kg

DRUGS (2)
  1. BENICAR [Suspect]
     Indication: SYSTOLIC HYPERTENSION
     Dates: start: 20040323, end: 20040830
  2. BENICAR HCT [Suspect]
     Indication: SYSTOLIC HYPERTENSION
     Dates: start: 20040323, end: 20040830

REACTIONS (8)
  - CHEST PAIN [None]
  - DYSPNOEA [None]
  - FATIGUE [None]
  - GLOMERULAR FILTRATION RATE ABNORMAL [None]
  - MUSCLE SPASMS [None]
  - NAUSEA [None]
  - PAIN IN EXTREMITY [None]
  - SHOULDER PAIN [None]
